FAERS Safety Report 16040912 (Version 1)
Quarter: 2019Q1

REPORT INFORMATION
  Report Type: Spontaneous
  Country: IT (occurrence: IT)
  Receive Date: 20190306
  Receipt Date: 20190306
  Transmission Date: 20190418
  Serious: Yes (Other)
  Sender: FDA-Public Use
  Company Number: IT-009507513-1504ITA011637

PATIENT
  Age: 45 Year
  Sex: Male

DRUGS (1)
  1. CUBICIN [Suspect]
     Active Substance: DAPTOMYCIN
     Indication: WOUND DEHISCENCE
     Dosage: 500 MILLIGRAM, ONCE
     Route: 042
     Dates: start: 20100513, end: 20100513

REACTIONS (2)
  - Laryngeal oedema [Recovering/Resolving]
  - Respiratory failure [Recovering/Resolving]

NARRATIVE: CASE EVENT DATE: 20100513
